FAERS Safety Report 22276203 (Version 3)
Quarter: 2024Q1

REPORT INFORMATION
  Report Type: Spontaneous
  Country: IN (occurrence: IN)
  Receive Date: 20230502
  Receipt Date: 20240125
  Transmission Date: 20240409
  Serious: Yes (Other)
  Sender: FDA-Public Use
  Company Number: IN-PFIZER INC-PV202300076390

PATIENT
  Age: 39 Year
  Sex: Male

DRUGS (2)
  1. CRIZOTINIB [Suspect]
     Active Substance: CRIZOTINIB
     Indication: Lung adenocarcinoma
     Dosage: 250 MG, 2X/DAY
     Route: 048
     Dates: start: 202206
  2. CRIZOTINIB [Suspect]
     Active Substance: CRIZOTINIB
     Dosage: 250, 2X/DAY
     Route: 048
     Dates: start: 202306

REACTIONS (5)
  - Neutrophil count decreased [Unknown]
  - Eosinophil count decreased [Unknown]
  - Monocyte count decreased [Unknown]
  - Empty sella syndrome [Unknown]
  - Rhinitis allergic [Unknown]
